FAERS Safety Report 9935640 (Version 5)
Quarter: 2014Q3

REPORT INFORMATION
  Report Type: Spontaneous
  Country: JP (occurrence: JP)
  Receive Date: 20140228
  Receipt Date: 20140723
  Transmission Date: 20150326
  Serious: Yes (Death, Other)
  Sender: FDA-Public Use
  Company Number: JP-009507513-1402JPN013645

PATIENT
  Age: 67 Year
  Sex: Male
  Weight: 40 kg

DRUGS (7)
  1. CANCIDAS [Suspect]
     Active Substance: CASPOFUNGIN ACETATE
     Indication: FEBRILE NEUTROPENIA
     Dosage: 70 MG, QD
     Route: 041
     Dates: start: 20130718, end: 20130718
  2. RINDERON V [Concomitant]
     Active Substance: BETAMETHASONE VALERATE
     Indication: BRAIN OEDEMA
     Dosage: 0.5 MG, QD
     Route: 048
     Dates: start: 20130723, end: 20130731
  3. CANCIDAS [Suspect]
     Active Substance: CASPOFUNGIN ACETATE
     Indication: FEBRILE NEUTROPENIA
     Dosage: 50 MG, QD
     Route: 041
     Dates: start: 20130719, end: 20130731
  4. DEPAKENE [Concomitant]
     Active Substance: VALPROIC ACID
     Indication: METASTASES TO CENTRAL NERVOUS SYSTEM
     Dosage: 200 MG, BID
     Route: 048
     Dates: start: 20130726, end: 20130731
  5. DEPAKENE [Concomitant]
     Active Substance: VALPROIC ACID
     Indication: CONVULSION PROPHYLAXIS
  6. RINDERON (BETAMETHASONE SODIUM PHOSPHATE) [Concomitant]
     Indication: BRAIN OEDEMA
     Dosage: 4 MG, QD
     Route: 051
     Dates: start: 20130718, end: 20130731
  7. MEROPENEM. [Concomitant]
     Active Substance: MEROPENEM
     Indication: FEBRILE NEUTROPENIA
     Dosage: 1 G, TID
     Route: 051
     Dates: start: 20130713, end: 20130724

REACTIONS (7)
  - Small cell lung cancer [Fatal]
  - White blood cell count increased [Not Recovered/Not Resolved]
  - Neutrophil count increased [Not Recovered/Not Resolved]
  - Gamma-glutamyltransferase increased [Not Recovered/Not Resolved]
  - Pyrexia [Not Recovered/Not Resolved]
  - C-reactive protein increased [Not Recovered/Not Resolved]
  - Blood lactate dehydrogenase increased [Not Recovered/Not Resolved]

NARRATIVE: CASE EVENT DATE: 20130718
